FAERS Safety Report 8791466 (Version 1)
Quarter: 2012Q4

REPORT INFORMATION
  Report Type: Spontaneous
  Country: US (occurrence: None)
  Receive Date: 20120912
  Receipt Date: 20120912
  Transmission Date: 20130627
  Serious: Yes (Hospitalization)
  Sender: FDA-Public Use
  Company Number: IMP_05977_2012

PATIENT
  Age: 78 Year
  Sex: Female
  Weight: 42.18 kg

DRUGS (3)
  1. DEMECLOCYCLINE [Suspect]
  2. NORMAL SALINE [Concomitant]
  3. FUROSEMIDE [Concomitant]

REACTIONS (11)
  - Hypernatraemia [None]
  - Mental status changes [None]
  - Convulsion [None]
  - Asthenia [None]
  - Thirst [None]
  - Confusional state [None]
  - Mucosal dryness [None]
  - Blood chloride increased [None]
  - Blood urea increased [None]
  - Weight increased [None]
  - Haematocrit decreased [None]
